FAERS Safety Report 12140899 (Version 1)
Quarter: 2016Q1

REPORT INFORMATION
  Report Type: Spontaneous
  Country: FR (occurrence: FR)
  Receive Date: 20160303
  Receipt Date: 20160303
  Transmission Date: 20160526
  Serious: Yes (Other)
  Sender: FDA-Public Use
  Company Number: FR-ABBVIE-16P-056-1571068-00

PATIENT
  Age: 75 Year
  Sex: Female
  Weight: 90 kg

DRUGS (9)
  1. EXVIERA [Suspect]
     Active Substance: DASABUVIR
     Indication: HEPATITIS C
     Route: 048
     Dates: start: 20160108
  2. AMLOR [Concomitant]
     Active Substance: AMLODIPINE BESYLATE
     Dates: start: 201602
  3. SOTALOL. [Concomitant]
     Active Substance: SOTALOL
     Indication: PALPITATIONS
     Route: 048
     Dates: start: 2006, end: 201602
  4. SOTALOL. [Concomitant]
     Active Substance: SOTALOL
     Route: 048
     Dates: start: 20160225
  5. VIEKIRAX [Suspect]
     Active Substance: OMBITASVIR\PARITAPREVIR\RITONAVIR
     Indication: HEPATITIS C
     Route: 048
     Dates: start: 20160108
  6. LEVOTHYROX [Concomitant]
     Active Substance: LEVOTHYROXINE
     Indication: THYROIDITIS
     Route: 048
     Dates: start: 2004
  7. KARDEGIC [Interacting]
     Active Substance: ASPIRIN LYSINE
     Indication: PALPITATIONS
     Route: 048
     Dates: start: 2004
  8. AMLOR [Concomitant]
     Active Substance: AMLODIPINE BESYLATE
     Indication: HYPERTENSION
     Dates: start: 2006, end: 201602
  9. SOTALOL. [Concomitant]
     Active Substance: SOTALOL
     Dosage: UNKNOWN
     Route: 048
     Dates: start: 20160204, end: 20160225

REACTIONS (2)
  - Atrial fibrillation [Recovering/Resolving]
  - Bradycardia [Unknown]

NARRATIVE: CASE EVENT DATE: 20160204
